FAERS Safety Report 5584058-2 (Version None)
Quarter: 2008Q1

REPORT INFORMATION
  Report Type: 
  Country: None (occurrence: None)
  Receive Date: 20080104
  Receipt Date: 20080104
  Transmission Date: 20080703
  Serious: Yes (Death)
  Sender: FDA-Public Use
  Company Number: None

PATIENT
  Age: 89 Year
  Sex: Male
  Weight: 63 kg

DRUGS (3)
  1. ASPIRIN [Suspect]
     Dosage: 81MG QD
  2. NAPROSYN [Suspect]
  3. FOSAMAX [Suspect]

REACTIONS (4)
  - ARRHYTHMIA [None]
  - FLUID IMBALANCE [None]
  - GASTROINTESTINAL HAEMORRHAGE [None]
  - RESPIRATORY FAILURE [None]
